FAERS Safety Report 4711492-2 (Version None)
Quarter: 2005Q3

REPORT INFORMATION
  Report Type: 
  Country: None (occurrence: None)
  Receive Date: 20050711
  Receipt Date: 20050628
  Transmission Date: 20060218
  Serious: Yes (Hospitalization, Other)
  Sender: FDA-Public Use
  Company Number: 200512654BCC

PATIENT
  Sex: Female

DRUGS (7)
  1. ALEVE [Suspect]
     Indication: DEMENTIA ALZHEIMER'S TYPE
     Dosage: BID, ORAL
     Route: 048
     Dates: start: 20030723, end: 20030910
  2. ALEVE [Suspect]
     Indication: PROPHYLAXIS
     Dosage: BID, ORAL
     Route: 048
     Dates: start: 20030723, end: 20030910
  3. ALEVE [Suspect]
     Indication: DEMENTIA ALZHEIMER'S TYPE
     Dosage: BID, ORAL
     Route: 048
     Dates: start: 20030915, end: 20030917
  4. ALEVE [Suspect]
     Indication: PROPHYLAXIS
     Dosage: BID, ORAL
     Route: 048
     Dates: start: 20030915, end: 20030917
  5. LIPITOR [Concomitant]
  6. FLAX SEED OIL [Concomitant]
  7. GLUCOSAMINE [Concomitant]

REACTIONS (4)
  - ASTHENIA [None]
  - TREMOR [None]
  - UNRESPONSIVE TO VERBAL STIMULI [None]
  - VOMITING [None]
